FAERS Safety Report 7909571-1 (Version None)
Quarter: 2011Q4

REPORT INFORMATION
  Report Type: 
  Country: None (occurrence: None)
  Receive Date: 20111111
  Receipt Date: 20111104
  Transmission Date: 20120403
  Serious: Yes (Other)
  Sender: FDA-Public Use
  Company Number: CL-PFIZER INC-2011251985

PATIENT
  Age: 61 Year
  Sex: Female
  Weight: 62.9 kg

DRUGS (5)
  1. ZYVOX [Suspect]
     Indication: BACTERAEMIA
     Dosage: 600 MG, 2X/DAY
     Route: 042
     Dates: start: 20111018, end: 20111019
  2. IMIPENEM [Concomitant]
     Dosage: 500 MG, 4X/DAY
     Route: 042
  3. PARACETAMOL [Concomitant]
     Dosage: 1 G, 4X/DAY
     Route: 048
  4. VORICONAZOLE [Concomitant]
     Dosage: 200 MG, 2X/DAY
     Route: 048
  5. RANITIDINE [Concomitant]
     Dosage: 300 MG, UNK
     Route: 048

REACTIONS (1)
  - DYSPNOEA [None]
